FAERS Safety Report 8825765 (Version 6)
Quarter: 2014Q1

REPORT INFORMATION
  Report Type: Spontaneous
  Country: US (occurrence: US)
  Receive Date: 20121004
  Receipt Date: 20140123
  Transmission Date: 20141002
  Serious: Yes (Hospitalization, Disabling, Other)
  Sender: FDA-Public Use
  Company Number: US-009507513-1205USA00963

PATIENT
  Sex: Female
  Weight: 86.17 kg

DRUGS (7)
  1. FOSAMAX [Suspect]
     Indication: OSTEOPENIA
     Dosage: 10 MG, UNK
     Route: 048
     Dates: start: 1998, end: 201004
  2. FOSAMAX [Suspect]
     Dosage: 70 MG, UNK
     Route: 048
     Dates: start: 20010503
  3. FOSAMAX [Suspect]
     Dosage: 70 MG
     Route: 048
     Dates: start: 20030702, end: 20080205
  4. FOSAMAX PLUS D [Suspect]
     Indication: OSTEOPENIA
     Dosage: UNK
     Route: 048
     Dates: end: 201004
  5. FOSAMAX [Suspect]
     Indication: OSTEOPENIA
     Dosage: 70 MG, UNK
     Dates: start: 20080304, end: 20100219
  6. ACTONEL [Suspect]
     Indication: HIP FRACTURE
     Dosage: 30 MG, QW
     Dates: start: 20010626, end: 20030602
  7. ACTONEL [Suspect]
     Indication: OSTEOPENIA

REACTIONS (23)
  - Femur fracture [Not Recovered/Not Resolved]
  - Intramedullary rod insertion [Unknown]
  - Knee arthroplasty [Unknown]
  - Femur fracture [Unknown]
  - Femur fracture [Unknown]
  - Low turnover osteopathy [Not Recovered/Not Resolved]
  - Foot fracture [Unknown]
  - Rib fracture [Unknown]
  - Ankle fracture [Unknown]
  - Pulmonary mass [Unknown]
  - Colon adenoma [Unknown]
  - Depression [Recovering/Resolving]
  - Anxiety [Recovering/Resolving]
  - Chloasma [Unknown]
  - Migraine [Unknown]
  - Osteoarthritis [Unknown]
  - Bronchitis [Unknown]
  - Large intestine polyp [Unknown]
  - Essential tremor [Unknown]
  - Lumbar radiculopathy [Unknown]
  - Enostosis [Unknown]
  - Osteoporosis [Unknown]
  - Gastrooesophageal reflux disease [Unknown]
